FAERS Safety Report 22114038 (Version 2)
Quarter: 2023Q2

REPORT INFORMATION
  Report Type: Report from Study
  Country: US (occurrence: US)
  Receive Date: 20230320
  Receipt Date: 20230515
  Transmission Date: 20230721
  Serious: Yes (Other)
  Sender: FDA-Public Use
  Company Number: US-SA-SAC20221213001528

PATIENT
  Age: 73 Year
  Sex: Female

DRUGS (21)
  1. BELUMOSUDIL MESYLATE [Suspect]
     Active Substance: BELUMOSUDIL MESYLATE
     Indication: Graft versus host disease
     Dosage: 200 MG, TOTAL, ONCE
     Route: 048
     Dates: start: 20220901
  2. PREDNISONE [Concomitant]
     Active Substance: PREDNISONE
     Indication: Graft versus host disease in skin
     Dosage: 60 MG
  3. PREDNISONE [Concomitant]
     Active Substance: PREDNISONE
     Dosage: 30 MG QD
  4. PREDNISONE [Concomitant]
     Active Substance: PREDNISONE
     Dosage: 20 MG
  5. PREDNISONE [Concomitant]
     Active Substance: PREDNISONE
     Dosage: 15 MG, QOD, ALTERNATING WITH 20MG QOD
  6. PREDNISONE [Concomitant]
     Active Substance: PREDNISONE
     Dosage: 20 MG, QOD, 15MG QOD ALTERNATING WITH 20MG QOD
  7. PREDNISONE [Concomitant]
     Active Substance: PREDNISONE
     Dosage: 15 MG, QD
  8. LEVOTHYROXINE [Concomitant]
     Active Substance: LEVOTHYROXINE
     Dosage: UNK
  9. ANORO ELLIPTA [Concomitant]
     Active Substance: UMECLIDINIUM BROMIDE\VILANTEROL TRIFENATATE
     Dosage: UNK
     Route: 055
  10. AMOXICILLIN [Concomitant]
     Active Substance: AMOXICILLIN
     Dosage: UNK
  11. BACTRIM [Concomitant]
     Active Substance: SULFAMETHOXAZOLE\TRIMETHOPRIM
     Dosage: UNK
  12. ROSUVASTATIN [Concomitant]
     Active Substance: ROSUVASTATIN
     Dosage: UNK
  13. AMLODIPINE [Concomitant]
     Active Substance: AMLODIPINE BESYLATE
     Dosage: UNK
  14. VITAMIN D NOS [Concomitant]
     Active Substance: VITAMIN D NOS
     Dosage: UNK
  15. COMPAZINE [Concomitant]
     Active Substance: PROCHLORPERAZINE MALEATE
     Dosage: UNK, PRN
  16. RESTASIS [Concomitant]
     Active Substance: CYCLOSPORINE
     Dosage: UNK
  17. MIRALAX [Concomitant]
     Active Substance: POLYETHYLENE GLYCOL 3350
     Dosage: UNK
  18. LACTULOSE [Concomitant]
     Active Substance: LACTULOSE
  19. HYDROCHLOROTHIAZIDE [Concomitant]
     Active Substance: HYDROCHLOROTHIAZIDE
     Dosage: UNK
  20. VITAMIN D NOS [Concomitant]
     Active Substance: VITAMIN D NOS
     Dosage: UNK
  21. HYDROCHLOROTHIAZIDE [Concomitant]
     Active Substance: HYDROCHLOROTHIAZIDE
     Dosage: UNK

REACTIONS (13)
  - Graft versus host disease in skin [Recovering/Resolving]
  - Condition aggravated [Recovering/Resolving]
  - Thrombosis [Not Recovered/Not Resolved]
  - Constipation [Unknown]
  - Blood test abnormal [Unknown]
  - Bone lesion [Not Recovered/Not Resolved]
  - Weight increased [Unknown]
  - Skin exfoliation [Recovering/Resolving]
  - Musculoskeletal chest pain [Not Recovered/Not Resolved]
  - Fatigue [Not Recovered/Not Resolved]
  - Hepatic enzyme increased [Not Recovered/Not Resolved]
  - Rash [Recovering/Resolving]
  - Contusion [Not Recovered/Not Resolved]
